FAERS Safety Report 22196338 (Version 1)
Quarter: 2023Q2

REPORT INFORMATION
  Report Type: Spontaneous
  Country: GB (occurrence: GB)
  Receive Date: 20230411
  Receipt Date: 20230411
  Transmission Date: 20230721
  Serious: Yes (Life-Threatening)
  Sender: FDA-Public Use
  Company Number: GB-MHRA-MED-202304061746031560-SPQYK

PATIENT

DRUGS (1)
  1. SERETIDE [Suspect]
     Active Substance: FLUTICASONE PROPIONATE\SALMETEROL XINAFOATE
     Indication: Asthma
     Dosage: 1 PUFF(S), BID
     Route: 065
     Dates: start: 20230330, end: 20230331

REACTIONS (2)
  - Medication error [Unknown]
  - Patient-device incompatibility [Unknown]

NARRATIVE: CASE EVENT DATE: 20230330
